FAERS Safety Report 23475414 (Version 1)
Quarter: 2024Q1

REPORT INFORMATION
  Report Type: Report from Study
  Country: US (occurrence: US)
  Receive Date: 20240204
  Receipt Date: 20240204
  Transmission Date: 20240409
  Serious: No
  Sender: FDA-Public Use
  Company Number: US-EXELIXIS-CABO-23059458

PATIENT
  Sex: Female

DRUGS (15)
  1. CABOMETYX [Suspect]
     Active Substance: CABOZANTINIB S-MALATE
     Indication: Renal cell carcinoma
     Dosage: 40 MG, QD
     Route: 048
     Dates: start: 202203
  2. CABOMETYX [Suspect]
     Active Substance: CABOZANTINIB S-MALATE
     Dosage: 40 MG, QD
     Route: 048
  3. OPDIVO [Suspect]
     Active Substance: NIVOLUMAB
     Indication: Renal cell carcinoma
     Dosage: UNK
     Dates: start: 202203
  4. LIPITOR [Concomitant]
     Active Substance: ATORVASTATIN CALCIUM
  5. ELIQUIS [Concomitant]
     Active Substance: APIXABAN
  6. CETIRIZINE [Concomitant]
     Active Substance: CETIRIZINE HYDROCHLORIDE
  7. VITAMINS [Concomitant]
     Active Substance: VITAMINS
  8. NASONEX [Concomitant]
     Active Substance: MOMETASONE FUROATE
  9. PROBIOTICS NOS [Concomitant]
     Active Substance: PROBIOTICS NOS
  10. PYRIDOXINE [Concomitant]
     Active Substance: PYRIDOXINE
  11. VITAMIN D NOS [Concomitant]
     Active Substance: VITAMIN D NOS
  12. ACETAMINOPHEN [Concomitant]
     Active Substance: ACETAMINOPHEN
  13. ACETAZOLAMIDE [Concomitant]
     Active Substance: ACETAZOLAMIDE
  14. ATORVASTATIN [Concomitant]
     Active Substance: ATORVASTATIN
  15. BENEFIBER [Concomitant]
     Active Substance: STARCH, WHEAT

REACTIONS (5)
  - Candida infection [Not Recovered/Not Resolved]
  - Thyroid disorder [Not Recovered/Not Resolved]
  - Diarrhoea [Not Recovered/Not Resolved]
  - Fatigue [Not Recovered/Not Resolved]
  - Blood pressure increased [Not Recovered/Not Resolved]
